FAERS Safety Report 7891228-7 (Version None)
Quarter: 2011Q4

REPORT INFORMATION
  Report Type: 
  Country: None (occurrence: None)
  Receive Date: 20111103
  Receipt Date: 20111025
  Transmission Date: 20120403
  Serious: Yes (Other)
  Sender: FDA-Public Use
  Company Number: US-ASTRAZENECA-2010SE09036

PATIENT
  Age: 72 Year
  Sex: Female
  Weight: 89.8 kg

DRUGS (9)
  1. ASPIRIN [Concomitant]
  2. ARIMIDEX [Suspect]
     Indication: BREAST CANCER
     Route: 048
     Dates: start: 20081101, end: 20110617
  3. FLAXSEED OIL [Concomitant]
  4. MULTI-VITAMINS [Concomitant]
  5. SALMON OIL [Concomitant]
  6. ASCORBIC ACID [Concomitant]
  7. COENZYME Q10 [Concomitant]
  8. METFORMIN HCL [Concomitant]
  9. LASIX [Concomitant]
     Route: 048

REACTIONS (17)
  - BLOOD GLUCOSE INCREASED [None]
  - UTERINE LEIOMYOMA [None]
  - NAUSEA [None]
  - DISEASE PROGRESSION [None]
  - OEDEMA PERIPHERAL [None]
  - HYPERTENSION [None]
  - ARTHRALGIA [None]
  - MULTIPLE ALLERGIES [None]
  - WEIGHT INCREASED [None]
  - MUSCULOSKELETAL STIFFNESS [None]
  - METASTASES TO SPINE [None]
  - BODY HEIGHT DECREASED [None]
  - BACK PAIN [None]
  - BLOOD CHOLESTEROL INCREASED [None]
  - SPINAL DISORDER [None]
  - SPINAL FRACTURE [None]
  - CONSTIPATION [None]
